FAERS Safety Report 9325128 (Version 2)
Quarter: 2013Q4

REPORT INFORMATION
  Report Type: Spontaneous
  Country: US (occurrence: US)
  Receive Date: 20130603
  Receipt Date: 20131115
  Transmission Date: 20140711
  Serious: Yes (Hospitalization)
  Sender: FDA-Public Use
  Company Number: US-B.I. PHARMACEUTICALS,INC./RIDGEFIELD-2013-BI-15461BP

PATIENT
  Age: 77 Year
  Sex: Male
  Weight: 95.25 kg

DRUGS (17)
  1. PRADAXA [Suspect]
     Indication: ANTICOAGULANT THERAPY
     Dosage: 300 MG
     Dates: start: 20110518, end: 20120502
  2. ZAROXOLYN [Concomitant]
     Route: 048
  3. AMBIEN [Concomitant]
     Route: 048
  4. EFFEXOR [Concomitant]
     Dosage: 37.5 MG
     Route: 048
  5. SPIRIVA [Concomitant]
     Dosage: 1 PUF
     Route: 055
  6. ALDACTONE [Concomitant]
     Dosage: 50 MG
     Route: 048
  7. PRINIVIL [Concomitant]
     Dosage: 20 MG
     Route: 048
  8. NIFEREX-150 FORTE [Concomitant]
     Route: 048
  9. LASIX [Concomitant]
     Dosage: 40 MG
     Route: 048
  10. CORDARONE [Concomitant]
     Dosage: 800 MG
     Route: 048
  11. NEXIUM [Concomitant]
     Dosage: 40 MG
     Route: 048
  12. COLACE [Concomitant]
     Route: 048
  13. TRACLEER [Concomitant]
     Indication: PULMONARY ARTERIAL HYPERTENSION
     Dosage: 250 MG
     Route: 048
  14. ASPIRIN [Concomitant]
     Dosage: 325 MG
     Route: 048
     Dates: end: 20120502
  15. K-DUR [Concomitant]
     Dosage: 40 MEQ
     Route: 048
  16. ROBITUSSIN AC [Concomitant]
     Indication: COUGH
     Route: 048
  17. TYLENOL PM [Concomitant]
     Route: 048

REACTIONS (2)
  - Lower gastrointestinal haemorrhage [Recovered/Resolved]
  - Haemorrhagic anaemia [Recovered/Resolved]
